FAERS Safety Report 8881983 (Version 1)
Quarter: 2012Q4

REPORT INFORMATION
  Report Type: 
  Country: CA (occurrence: CA)
  Receive Date: 20121102
  Receipt Date: 20121102
  Transmission Date: 20130627
  Serious: Yes (Other)
  Sender: FDA-Public Use
  Company Number: PHHY2008CA11774

PATIENT
  Sex: Female

DRUGS (1)
  1. SANDOSTATIN LAR [Suspect]
     Indication: ACROMEGALY
     Dosage: 40 mg, TIW
     Route: 030
     Dates: start: 20011017

REACTIONS (3)
  - Sinus congestion [Unknown]
  - Diabetes mellitus [Unknown]
  - Blood glucose increased [Recovering/Resolving]
